FAERS Safety Report 17065440 (Version 1)
Quarter: 2019Q4

REPORT INFORMATION
  Report Type: Spontaneous
  Country: CH (occurrence: CH)
  Receive Date: 20191122
  Receipt Date: 20191122
  Transmission Date: 20200122
  Serious: Yes (Other)
  Sender: FDA-Public Use
  Company Number: CH-GLAXOSMITHKLINE-CH2019EME206391

PATIENT

DRUGS (7)
  1. NUCALA [Suspect]
     Active Substance: MEPOLIZUMAB
     Indication: PRODUCT USED FOR UNKNOWN INDICATION
     Dosage: UNK
  2. SPIRICORT [Suspect]
     Active Substance: PREDNISOLONE
     Indication: PRODUCT USED FOR UNKNOWN INDICATION
     Dosage: 30 MG, QD
  3. ISONIAZID. [Suspect]
     Active Substance: ISONIAZID
     Indication: TUBERCULOSIS
     Dosage: UNK
  4. SPIRICORT [Suspect]
     Active Substance: PREDNISOLONE
     Dosage: 7.5 MG, QD
  5. SPIRICORT [Suspect]
     Active Substance: PREDNISOLONE
     Dosage: 10 MG, QD
  6. METOJECT [Suspect]
     Active Substance: METHOTREXATE SODIUM
     Indication: RESPIRATORY SYMPTOM
     Dosage: UNK
     Dates: start: 201705
  7. IMUREK [Suspect]
     Active Substance: AZATHIOPRINE
     Indication: PRODUCT USED FOR UNKNOWN INDICATION
     Dosage: 75 MG, 1D
     Dates: start: 20190820

REACTIONS (11)
  - Obstructive airways disorder [Unknown]
  - C-reactive protein increased [Unknown]
  - Blood immunoglobulin G decreased [Unknown]
  - Hepatic enzyme increased [Unknown]
  - Condition aggravated [Unknown]
  - Drug-induced liver injury [Unknown]
  - Inflammation [Recovering/Resolving]
  - Chills [Unknown]
  - Therapy cessation [Unknown]
  - Withdrawal syndrome [Unknown]
  - Intentional product use issue [Unknown]
